FAERS Safety Report 23851506 (Version 1)
Quarter: 2024Q2

REPORT INFORMATION
  Report Type: Spontaneous
  Country: SG (occurrence: None)
  Receive Date: 20240514
  Receipt Date: 20240514
  Transmission Date: 20240716
  Serious: Yes (Other)
  Sender: FDA-Public Use
  Company Number: SG-ROCHE-3560624

PATIENT
  Age: 79 Year
  Sex: Female
  Weight: 66 kg

DRUGS (5)
  1. PHESGO [Suspect]
     Active Substance: HYALURONIDASE-ZZXF\PERTUZUMAB\TRASTUZUMAB
     Indication: Product used for unknown indication
     Route: 065
  2. CAPECITABINE [Suspect]
     Active Substance: CAPECITABINE
     Indication: Product used for unknown indication
     Route: 065
  3. AMLODIPINE [Concomitant]
     Active Substance: AMLODIPINE BESYLATE
  4. ATENOLOL [Concomitant]
     Active Substance: ATENOLOL
  5. LOVASTATIN [Concomitant]
     Active Substance: LOVASTATIN

REACTIONS (4)
  - Haemorrhage [Not Recovered/Not Resolved]
  - Breast discharge [Not Recovered/Not Resolved]
  - Dry mouth [Not Recovered/Not Resolved]
  - Nail discomfort [Not Recovered/Not Resolved]

NARRATIVE: CASE EVENT DATE: 20230801
